FAERS Safety Report 4326382-7 (Version None)
Quarter: 2004Q1

REPORT INFORMATION
  Report Type: 
  Country: None (occurrence: None)
  Receive Date: 20040329
  Receipt Date: 20040329
  Transmission Date: 20041129
  Serious: Yes (Hospitalization)
  Sender: FDA-Public Use
  Company Number: None

PATIENT
  Age: 54 Year
  Sex: Male

DRUGS (7)
  1. BEVACIZUAB 10 MG/KG Q 2 WKS IV [Suspect]
     Indication: COLON CANCER
     Dosage: 10MG/KG Q2WKS IV
     Route: 042
  2. OAXLIPLATIN 85MG/M2 Q 2 WKS IV [Suspect]
  3. XELODA [Suspect]
  4. FLAGYL [Concomitant]
  5. COMPAZINE [Concomitant]
  6. ZOFRAN [Concomitant]
  7. M.V.I. [Concomitant]

REACTIONS (7)
  - ABDOMINAL PAIN [None]
  - CLOSTRIDIAL INFECTION [None]
  - DIARRHOEA [None]
  - NAUSEA [None]
  - VOMITING [None]
  - WHITE BLOOD CELL DISORDER [None]
  - WHITE BLOOD CELLS STOOL POSITIVE [None]
